FAERS Safety Report 7797160-1 (Version None)
Quarter: 2011Q4

REPORT INFORMATION
  Report Type: 
  Country: None (occurrence: None)
  Receive Date: 20111005
  Receipt Date: 20110923
  Transmission Date: 20120403
  Serious: Yes (Hospitalization, Other)
  Sender: FDA-Public Use
  Company Number: US-BAYER-2011-026950

PATIENT
  Age: 32 Year
  Sex: Female
  Weight: 90.703 kg

DRUGS (10)
  1. YAZ [Suspect]
     Indication: PREMENSTRUAL SYNDROME
     Dosage: UNK
     Dates: start: 20090101, end: 20090401
  2. PANTOPRAZOLE [Concomitant]
     Dosage: UNK
     Route: 048
     Dates: start: 20080101
  3. VITAMIN D [Concomitant]
     Dosage: UNK UNK, QD
     Route: 048
     Dates: start: 20090301
  4. ZANTAC [Concomitant]
     Dosage: UNK UNK, QD
     Route: 048
     Dates: start: 20090301
  5. IBS FORMULA [Concomitant]
     Dosage: UNK UNK, QD
     Route: 048
     Dates: start: 20090301
  6. CALCIUM CARBONATE [Concomitant]
     Dosage: 600 MG, QD
     Route: 048
     Dates: start: 20090301
  7. MAALOX TC [Concomitant]
     Dosage: UNK UNK, QD
     Route: 048
     Dates: start: 20090301
  8. BUPROPION HCL [Concomitant]
     Dosage: UNK
     Route: 048
     Dates: start: 20070101
  9. DIGESTIVE ADVANTAGE [Concomitant]
     Dosage: UNK UNK, QD
     Route: 048
     Dates: start: 20090301
  10. PROBIOTICA [Concomitant]
     Dosage: UNK UNK, QD
     Route: 048
     Dates: start: 20090301

REACTIONS (7)
  - PAIN [None]
  - EMOTIONAL DISTRESS [None]
  - GENERAL PHYSICAL HEALTH DETERIORATION [None]
  - ANXIETY [None]
  - INJURY [None]
  - ANHEDONIA [None]
  - CHOLECYSTECTOMY [None]
